FAERS Safety Report 16215318 (Version 1)
Quarter: 2019Q2

REPORT INFORMATION
  Report Type: Spontaneous
  Country: ES (occurrence: ES)
  Receive Date: 20190419
  Receipt Date: 20190419
  Transmission Date: 20190711
  Serious: Yes (Other)
  Sender: FDA-Public Use
  Company Number: ES-AUROBINDO-AUR-APL-2019-021216

PATIENT

DRUGS (7)
  1. BROMAZEPAM [Concomitant]
     Active Substance: BROMAZEPAM
     Indication: PRODUCT USED FOR UNKNOWN INDICATION
     Dosage: 1 DOSAGE FORM, TWO TIMES A DAY (1 CAPSULE EVERY 12 H)
     Route: 065
     Dates: start: 201901
  2. FENTANYL. [Suspect]
     Active Substance: FENTANYL
     Dosage: 1 RESCUE DOSE WHEN HE HAS NOT DEFECATING FOR MORE THAN 1 DAY OR ITS VOLUME INCREASE
     Route: 045
  3. MACROGOL [Concomitant]
     Active Substance: POLYETHYLENE GLYCOLS
     Indication: DYSCHEZIA
     Dosage: 1 DOSAGE FORM, ONCE A DAY (1 SACHET EVERY 24 HOURS)
     Route: 065
  4. CAPECITABINE. [Suspect]
     Active Substance: CAPECITABINE
     Indication: COLORECTAL ADENOCARCINOMA
     Dosage: 1500 MILLIGRAM, TWO TIMES A DAY (1500 MG, EVERY 12H (TOGETHER WITH RADIOTHERAPY SESSIONS)
     Route: 065
     Dates: start: 20181217
  5. DEXKETOPROFEN [Concomitant]
     Active Substance: DEXKETOPROFEN
     Indication: CANCER PAIN
     Dosage: 1 DOSAGE FORM, 3 TIMES A DAY (1 TABLET EVERY 8 HOURS)
     Route: 065
  6. FENTANYL TRANSDERMAL SYSTEM [Suspect]
     Active Substance: FENTANYL
     Indication: CANCER PAIN
     Dosage: 12 ?G/H, 72 HOUR
     Route: 065
     Dates: start: 201901, end: 2019
  7. FENTANYL. [Suspect]
     Active Substance: FENTANYL
     Indication: BREAKTHROUGH PAIN
     Dosage: 1 RESCUE DOSE EVERY TIME THE PATIENT DEFECATES
     Route: 045
     Dates: start: 201901

REACTIONS (3)
  - Neurotoxicity [Unknown]
  - Off label use [Not Recovered/Not Resolved]
  - Therapy naive [Not Recovered/Not Resolved]

NARRATIVE: CASE EVENT DATE: 201901
